FAERS Safety Report 4498231-8 (Version None)
Quarter: 2004Q3

REPORT INFORMATION
  Report Type: 
  Country: None (occurrence: None)
  Receive Date: 20040927
  Receipt Date: 20040607
  Transmission Date: 20050211
  Serious: No
  Sender: FDA-Public Use
  Company Number: USA040669460

PATIENT
  Age: 58 Year
  Sex: Female
  Weight: 136 kg

DRUGS (6)
  1. STRATTERA [Suspect]
     Indication: ATTENTION DEFICIT/HYPERACTIVITY DISORDER
     Dosage: 18 MG DAY
     Dates: start: 20040603, end: 20040605
  2. SYNTHROID [Concomitant]
  3. CYTOMEL [Concomitant]
  4. LISINOPRIL [Concomitant]
  5. ZOCOR [Concomitant]
  6. RELAFEN [Concomitant]

REACTIONS (2)
  - DIFFICULTY IN WALKING [None]
  - OEDEMA PERIPHERAL [None]
